FAERS Safety Report 12052800 (Version 1)
Quarter: 2016Q1

REPORT INFORMATION
  Report Type: Report from Study
  Country: US (occurrence: US)
  Receive Date: 20160209
  Receipt Date: 20160209
  Transmission Date: 20160526
  Serious: Yes (Hospitalization, Other)
  Sender: FDA-Public Use
  Company Number: US-PFIZER INC-2016061108

PATIENT
  Age: 45 Year
  Sex: Female
  Weight: 123 kg

DRUGS (3)
  1. TYVASO [Suspect]
     Active Substance: TREPROSTINIL
     Indication: PULMONARY HYPERTENSION
     Dosage: UNK, 1X/DAY (18-54 UG)
     Dates: start: 20150518
  2. REVATIO [Suspect]
     Active Substance: SILDENAFIL CITRATE
     Dosage: UNK
  3. LETAIRIS [Suspect]
     Active Substance: AMBRISENTAN
     Dosage: 10 MG, 1X/DAY
     Dates: start: 20130430

REACTIONS (8)
  - Oedema peripheral [Not Recovered/Not Resolved]
  - Dyspnoea exertional [Unknown]
  - Fluid retention [Unknown]
  - Fatigue [Unknown]
  - Pneumonia [Unknown]
  - Sinus congestion [Unknown]
  - Snoring [Unknown]
  - Blood pressure decreased [Unknown]

NARRATIVE: CASE EVENT DATE: 20151227
